FAERS Safety Report 4400728-3 (Version None)
Quarter: 2004Q3

REPORT INFORMATION
  Report Type: 
  Country: None (occurrence: None)
  Receive Date: 20040716
  Receipt Date: 20040716
  Transmission Date: 20050211
  Serious: Yes (Death)
  Sender: FDA-Public Use
  Company Number: None

PATIENT
  Age: 53 Year
  Sex: Male
  Weight: 76.4 kg

DRUGS (1)
  1. WARFARIN SODIUM [Suspect]
     Indication: MITRAL VALVE REPLACEMENT
     Dosage: WARFARIN  QD  ORAL
     Route: 048
     Dates: start: 19950101, end: 20040714

REACTIONS (7)
  - ASPIRATION [None]
  - CARDIO-RESPIRATORY ARREST [None]
  - COMA [None]
  - ELECTROCARDIOGRAM ST SEGMENT ELEVATION [None]
  - HAEMATEMESIS [None]
  - MYDRIASIS [None]
  - PUPIL FIXED [None]
